FAERS Safety Report 25273989 (Version 1)
Quarter: 2025Q2

REPORT INFORMATION
  Report Type: Spontaneous
  Country: US (occurrence: None)
  Receive Date: 20250506
  Receipt Date: 20250506
  Transmission Date: 20250717
  Serious: Yes (Hospitalization)
  Sender: FDA-CTU
  Company Number: None

PATIENT
  Sex: Male
  Weight: 62.55 kg

DRUGS (2)
  1. WINREVAIR [Suspect]
     Active Substance: SOTATERCEPT-CSRK
     Indication: Pulmonary arterial hypertension
     Dosage: OTHER FREQUENCY : EVERY 3 WEEKS;?
     Route: 058
     Dates: start: 20241002
  2. ARCALYST [Suspect]
     Active Substance: RILONACEPT

REACTIONS (5)
  - Pericardial effusion [None]
  - Peripheral swelling [None]
  - Joint swelling [None]
  - Peripheral swelling [None]
  - Pericardial disease [None]
